FAERS Safety Report 8093861-9 (Version None)
Quarter: 2012Q1

REPORT INFORMATION
  Report Type: 
  Country: None (occurrence: None)
  Receive Date: 20120125
  Receipt Date: 20120118
  Transmission Date: 20120608
  Serious: Yes (Hospitalization)
  Sender: FDA-Public Use
  Company Number: USA/USA/12/0022719

PATIENT
  Age: 20 Year
  Sex: Male

DRUGS (4)
  1. RISPERIDONE [Suspect]
     Indication: MILD MENTAL RETARDATION
     Dosage: 0.25 MG IN MORNING AND 1 MG IN EVENING, UNKNOWN
  2. METHYLPREDNISOLONE [Concomitant]
  3. GILENYA [Suspect]
     Indication: MULTIPLE SCLEROSIS
     Dosage: 0.5 MG, ORAL
     Route: 048
  4. PREDNISONE TAB [Concomitant]

REACTIONS (9)
  - MULTIPLE SCLEROSIS [None]
  - CONVULSION [None]
  - MALAISE [None]
  - UNRESPONSIVE TO STIMULI [None]
  - CARDIAC ARREST [None]
  - NAUSEA [None]
  - DRUG INTERACTION [None]
  - CONDITION AGGRAVATED [None]
  - BRADYCARDIA [None]
